FAERS Safety Report 4905710-5 (Version None)
Quarter: 2006Q1

REPORT INFORMATION
  Report Type: 
  Country: None (occurrence: None)
  Receive Date: 20060208
  Receipt Date: 20050426
  Transmission Date: 20060701
  Serious: Yes (Other)
  Sender: FDA-Public Use
  Company Number: US-MERCK-0504USA04976

PATIENT
  Age: 71 Year
  Sex: Male
  Weight: 94 kg

DRUGS (1)
  1. VIOXX [Suspect]
     Indication: ARTHRITIS
     Route: 048
     Dates: start: 20001001, end: 20040101

REACTIONS (6)
  - CATHETER RELATED COMPLICATION [None]
  - CORONARY ARTERY DISEASE [None]
  - DYSPNOEA [None]
  - FLUID RETENTION [None]
  - MYOCARDIAL INFARCTION [None]
  - PROSTATIC ATROPHY [None]
